FAERS Safety Report 6765962-6 (Version None)
Quarter: 2010Q2

REPORT INFORMATION
  Report Type: 
  Country: None (occurrence: None)
  Receive Date: 20100611
  Receipt Date: 20100601
  Transmission Date: 20101027
  Serious: Yes (Death)
  Sender: FDA-Public Use
  Company Number: B0660022A

PATIENT
  Age: 64 Year
  Sex: Female

DRUGS (1)
  1. CLOBETASOL PROPIONATE [Suspect]

REACTIONS (2)
  - NECROTISING FASCIITIS [None]
  - SKIN INFECTION [None]
